FAERS Safety Report 7541862-9 (Version None)
Quarter: 2011Q2

REPORT INFORMATION
  Report Type: 
  Country: None (occurrence: None)
  Receive Date: 20110524
  Receipt Date: 20110322
  Transmission Date: 20111010
  Serious: No
  Sender: FDA-Public Use
  Company Number: 029833

PATIENT
  Sex: Female
  Weight: 48.1 kg

DRUGS (3)
  1. DEXLANSOPRAZOLE [Concomitant]
  2. CIMZIA [Suspect]
     Indication: CROHN'S DISEASE
     Dosage: INDUCTION  DOSE SUBCUTANEOUS, 2 SHOTS ONCE IN A MONTH SUBCUTANEOUS
     Route: 058
     Dates: start: 20091201
  3. CIMZIA [Suspect]
     Indication: CROHN'S DISEASE
     Dosage: INDUCTION  DOSE SUBCUTANEOUS, 2 SHOTS ONCE IN A MONTH SUBCUTANEOUS
     Route: 058
     Dates: start: 20100401

REACTIONS (2)
  - FATIGUE [None]
  - FEELING ABNORMAL [None]
